FAERS Safety Report 7974091-5 (Version None)
Quarter: 2011Q4

REPORT INFORMATION
  Report Type: 
  Country: None (occurrence: None)
  Receive Date: 20111213
  Receipt Date: 20111209
  Transmission Date: 20120403
  Serious: Yes (Death)
  Sender: FDA-Public Use
  Company Number: US-AMGEN-USASP2011064869

PATIENT
  Sex: Male

DRUGS (1)
  1. NPLATE [Suspect]
     Indication: LYMPHOMA
     Dosage: UNK
     Dates: start: 20100209

REACTIONS (1)
  - LYMPHOMA [None]
